FAERS Safety Report 14288834 (Version 1)
Quarter: 2017Q4

REPORT INFORMATION
  Report Type: Report from Study
  Country: IE (occurrence: IE)
  Receive Date: 20171214
  Receipt Date: 20171214
  Transmission Date: 20180321
  Serious: Yes (Other)
  Sender: FDA-Public Use
  Company Number: IE-AMGEN-IRLSL2017183303

PATIENT
  Sex: Female

DRUGS (8)
  1. SOLPADEINE [Concomitant]
     Dosage: 2 UNK, AS NECESSARY
  2. DETRUSITOL [Concomitant]
     Active Substance: TOLTERODINE TARTRATE
     Dosage: 1 MG, QD
  3. ASPIRIN. [Concomitant]
     Active Substance: ASPIRIN
     Dosage: 75 MG, QD
  4. DIOVAN [Concomitant]
     Active Substance: VALSARTAN
     Dosage: 160 MG, QD
  5. DELTACORTRIL [Concomitant]
     Active Substance: PREDNISOLONE
     Dosage: UNK UNK, 2.5 MG TO 5 MG QOD
  6. LANSOPRAZOLE. [Concomitant]
     Active Substance: LANSOPRAZOLE
     Dosage: 30 MG, QD
  7. ARANESP [Suspect]
     Active Substance: DARBEPOETIN ALFA
     Indication: CHRONIC KIDNEY DISEASE
     Dosage: 50 MUG, Q2WK
     Route: 058
     Dates: start: 20170721
  8. METACORT [Concomitant]
     Dosage: 25 MG, BID

REACTIONS (1)
  - Cataract operation [Unknown]
